FAERS Safety Report 10253064 (Version 1)
Quarter: 2014Q2

REPORT INFORMATION
  Report Type: Spontaneous
  Country: FR (occurrence: FR)
  Receive Date: 20140623
  Receipt Date: 20140623
  Transmission Date: 20141212
  Serious: Yes (Death, Life-Threatening, Hospitalization, Other)
  Sender: FDA-Public Use
  Company Number: FR-PFIZER INC-2014165188

PATIENT
  Age: 82 Year
  Sex: Male

DRUGS (17)
  1. AMLODIPINE BESILATE [Suspect]
     Dosage: 5 MG, 1X/DAY
     Route: 048
  2. TAHOR [Suspect]
     Dosage: 10 MG, 1X/DAY
     Route: 048
  3. SPIRIVA [Suspect]
     Dosage: 18 UG, DAILY
     Route: 055
  4. GABAPENTINE ARROW [Suspect]
     Indication: NEURALGIA
     Dosage: 100 MG, 2X/DAY
     Route: 048
     Dates: start: 20140420, end: 20140425
  5. PLAVIX [Suspect]
     Dosage: 75 MG, 1X/DAY
     Route: 048
     Dates: end: 20140429
  6. PLAVIX [Suspect]
     Dosage: UNK
     Dates: start: 20140513
  7. INEXIUM [Suspect]
     Dosage: 20 MG, 1X/DAY
     Route: 048
  8. MODOPAR [Suspect]
     Dosage: 375 MG (3 X 25 MG/100 MG), 1X/DAY
     Route: 048
  9. PARACETAMOL [Suspect]
     Dosage: 4 G, 1X/DAY
     Route: 048
  10. CALCIDIA [Suspect]
     Dosage: 4.62 G (3 X 1.54 G), 1X/DAY
     Route: 048
  11. TEMERIT [Suspect]
     Dosage: 5 MG, 1X/DAY
     Route: 048
  12. TRANSIPEG [Suspect]
     Dosage: 11.8 G (2 X 5.9 G), 1X/DAY
     Route: 048
  13. FLIXOTIDE DISKUS [Suspect]
     Dosage: 1000 UG (2 X 500 UG), DAILY
     Route: 055
  14. TERBUTALINE SULFATE [Suspect]
     Dosage: 3 DF, 1X/DAY
     Route: 055
  15. INSTANYL [Suspect]
     Dosage: 100 UG, DAILY
     Route: 045
  16. TOBRADEX [Suspect]
     Dosage: 4 GTT, 1X/DAY
     Route: 047
  17. MATRIFEN [Suspect]
     Dosage: 1 DF, DAILY
     Route: 003

REACTIONS (7)
  - Death [Fatal]
  - Thrombocytopenia [Unknown]
  - Hypovolaemic shock [Unknown]
  - Acute pulmonary oedema [Unknown]
  - Haemodynamic instability [Unknown]
  - Cachexia [Unknown]
  - Dehydration [Unknown]
